FAERS Safety Report 8592043-1 (Version None)
Quarter: 2012Q3

REPORT INFORMATION
  Report Type: 
  Country: None (occurrence: None)
  Receive Date: 20120814
  Receipt Date: 20120802
  Transmission Date: 20120928
  Serious: Yes (Other)
  Sender: FDA-Public Use
  Company Number: ES-JNJFOC-20120805136

PATIENT
  Age: 76 Year
  Sex: Female

DRUGS (1)
  1. TRAMADOL HCL [Suspect]
     Indication: SCIATICA
     Dosage: DURATION OF DRUG ADMINISTRATION 27 DAYS
     Route: 048
     Dates: start: 20120618, end: 20120714

REACTIONS (1)
  - BREAST DISCHARGE [None]
